FAERS Safety Report 15613818 (Version 1)
Quarter: 2018Q4

REPORT INFORMATION
  Report Type: Spontaneous
  Country: ZA (occurrence: ZA)
  Receive Date: 20181113
  Receipt Date: 20181113
  Transmission Date: 20190205
  Serious: Yes (Death)
  Sender: FDA-Public Use
  Company Number: ZA-PFIZER INC-2018464538

PATIENT
  Age: 81 Year
  Sex: Female

DRUGS (15)
  1. SPIRACTIN (SPIRONOLACTONE) [Suspect]
     Active Substance: SPIRONOLACTONE
     Dosage: 25 MG, UNK
  2. ASPIRIN [ACETYLSALICYLIC ACID] [Suspect]
     Active Substance: ASPIRIN
     Dosage: 80 MG, UNK
  3. CARLOC [Suspect]
     Active Substance: CARVEDILOL
     Dosage: 6.25 MG, UNK
  4. NIVAQUINE [CHLOROQUINE] [Suspect]
     Active Substance: CHLOROQUINE
     Dosage: 200 MG, UNK
  5. SLOW MAG [MAGNESIUM CHLORIDE] [Suspect]
     Active Substance: MAGNESIUM CHLORIDE
     Dosage: 535 MG, UNK
  6. CITRAZ [Suspect]
     Active Substance: ESCITALOPRAM OXALATE
     Dosage: 20 MG, UNK
  7. METHOTREXATE. [Suspect]
     Active Substance: METHOTREXATE
     Dosage: 2.5 MG, UNK
  8. NEXOMIST [Suspect]
     Active Substance: MOMETASONE FUROATE
     Dosage: 150 UG, UNK
  9. PROBEN [KETOPROFEN] [Suspect]
     Active Substance: KETOPROFEN
     Dosage: 500 MG, UNK
  10. PREMARIN [Suspect]
     Active Substance: ESTROGENS, CONJUGATED
     Dosage: 0.625 MG, UNK
  11. PURESIS [Suspect]
     Active Substance: FUROSEMIDE
     Dosage: 40 MG, UNK
  12. ALLECET [CETIRIZINE HYDROCHLORIDE] [Suspect]
     Active Substance: CETIRIZINE HYDROCHLORIDE
     Dosage: 10 MG, UNK
  13. PURICOS [Suspect]
     Active Substance: ALLOPURINOL
     Dosage: 300 MG, UNK
  14. ELTROXIN [Suspect]
     Active Substance: LEVOTHYROXINE
     Dosage: 100 UG, UNK
  15. BE-TABS FOLIC ACID [Suspect]
     Active Substance: FOLIC ACID
     Dosage: 5 MG, UNK

REACTIONS (2)
  - Cardiac failure [Fatal]
  - Renal failure [Fatal]
